FAERS Safety Report 9747170 (Version 3)
Quarter: 2013Q4

REPORT INFORMATION
  Report Type: Report from Study
  Country: DE (occurrence: DE)
  Receive Date: 20131211
  Receipt Date: 20131223
  Transmission Date: 20140711
  Serious: Yes (Hospitalization, Other)
  Sender: FDA-Public Use
  Company Number: DE-AMGEN-DEUCT2013081113

PATIENT
  Age: 62 Year
  Sex: Female
  Weight: 64 kg

DRUGS (2)
  1. ETANERCEPT [Suspect]
     Indication: PRODUCT USED FOR UNKNOWN INDICATION
     Dosage: 50 MG, WEEKLY
     Route: 058
     Dates: start: 20130710
  2. DECORTIN [Concomitant]
     Indication: SARCOIDOSIS
     Dosage: UNK
     Route: 048
     Dates: start: 20131029

REACTIONS (1)
  - Pulmonary sarcoidosis [Not Recovered/Not Resolved]
